FAERS Safety Report 8191366-8 (Version None)
Quarter: 2012Q1

REPORT INFORMATION
  Report Type: 
  Country: None (occurrence: None)
  Receive Date: 20120307
  Receipt Date: 20120305
  Transmission Date: 20120608
  Serious: Yes (Death)
  Sender: FDA-Public Use
  Company Number: US-CELGENEUS-163-21880-12030427

PATIENT
  Sex: Female

DRUGS (15)
  1. REVLIMID [Suspect]
     Indication: MULTIPLE MYELOMA
     Dosage: 10 MILLIGRAM
     Route: 048
     Dates: start: 20120209, end: 20120101
  2. PROCHLORPERAZINE [Concomitant]
     Dosage: 10 MILLIGRAM
     Route: 048
  3. BACLOFEN [Concomitant]
     Dosage: 20 MILLIGRAM
     Route: 048
  4. LIPITOR [Concomitant]
     Dosage: 20 MILLIGRAM
     Route: 048
  5. COLACE [Concomitant]
     Dosage: 100 MILLIGRAM
     Route: 048
  6. FISH OIL [Concomitant]
     Route: 048
  7. OXYCODONE HCL [Concomitant]
     Dosage: 5 MILLIGRAM
     Route: 048
  8. VALTREX [Concomitant]
     Dosage: 500 MILLIGRAM
     Route: 048
  9. ATIVAN [Concomitant]
     Dosage: 1 MILLIGRAM
     Route: 048
  10. LASIX [Concomitant]
     Dosage: 40 MILLIGRAM
     Route: 048
  11. LISINOPRIL [Concomitant]
     Dosage: 20 MILLIGRAM
     Route: 048
  12. OXYCONTIN [Concomitant]
     Dosage: 30 MILLIGRAM
     Route: 048
  13. MORPHINE SULFATE [Concomitant]
     Dosage: 30 MILLIGRAM
     Route: 048
  14. PRILOSEC [Concomitant]
     Dosage: 20 MILLIGRAM
     Route: 048
  15. VITAMIN D [Concomitant]
     Dosage: 400 UNITS
     Route: 048

REACTIONS (1)
  - DEATH [None]
